FAERS Safety Report 5791991-5 (Version None)
Quarter: 2008Q2

REPORT INFORMATION
  Report Type: 
  Country: None (occurrence: None)
  Receive Date: 20080625
  Receipt Date: 20080304
  Transmission Date: 20081010
  Serious: No
  Sender: FDA-Public Use
  Company Number: US-WYE-H02291608

PATIENT
  Age: 79 Year
  Sex: Male
  Weight: 88.76 kg

DRUGS (2)
  1. TORISEL [Suspect]
     Indication: RENAL CELL CARCINOMA
     Dosage: 25 MG 1X PER 1 WK, INTRAVENOUS
     Route: 042
     Dates: start: 20071129, end: 20080125
  2. ACCUPRIL [Concomitant]

REACTIONS (3)
  - BLOOD CREATININE INCREASED [None]
  - INFLUENZA LIKE ILLNESS [None]
  - PYREXIA [None]
